FAERS Safety Report 12644588 (Version 1)
Quarter: 2016Q3

REPORT INFORMATION
  Report Type: Spontaneous
  Country: US (occurrence: US)
  Receive Date: 20160811
  Receipt Date: 20160811
  Transmission Date: 20161109
  Serious: No
  Sender: FDA-Public Use
  Company Number: US-ASTRAZENECA-2006BM02954

PATIENT
  Age: 63 Year
  Sex: Female
  Weight: 71.7 kg

DRUGS (5)
  1. BYETTA [Suspect]
     Active Substance: EXENATIDE
     Indication: TYPE 2 DIABETES MELLITUS
     Route: 058
     Dates: start: 20060212
  2. CRESTOR [Suspect]
     Active Substance: ROSUVASTATIN CALCIUM
     Indication: BLOOD CHOLESTEROL INCREASED
     Route: 048
  3. HUMALOG [Concomitant]
     Active Substance: INSULIN LISPRO
     Dates: start: 2003, end: 20060212
  4. NOVOLIN N [Concomitant]
     Active Substance: INSULIN HUMAN
     Dates: start: 2003, end: 20060212
  5. NOVOLIN N [Concomitant]
     Active Substance: INSULIN HUMAN
     Dates: start: 20061202

REACTIONS (6)
  - Drug dose omission [Unknown]
  - Spinal fracture [Unknown]
  - Fall [Unknown]
  - Blood glucose increased [Not Recovered/Not Resolved]
  - Body height decreased [Unknown]
  - Spinal deformity [Unknown]

NARRATIVE: CASE EVENT DATE: 2004
